FAERS Safety Report 10926162 (Version 1)
Quarter: 2015Q1

REPORT INFORMATION
  Report Type: Spontaneous
  Country: PL (occurrence: PL)
  Receive Date: 20150318
  Receipt Date: 20150318
  Transmission Date: 20150721
  Serious: Yes (Other)
  Sender: FDA-Public Use
  Company Number: PL-VIVUS-2015V1000101

PATIENT
  Age: 61 Year
  Sex: Male

DRUGS (6)
  1. BISOPROLOL [Concomitant]
     Active Substance: BISOPROLOL
  2. IPOREL [Concomitant]
     Active Substance: CLONIDINE
  3. FUROSEMID [Concomitant]
     Active Substance: FUROSEMIDE
  4. DOPEGYT [Concomitant]
     Active Substance: METHYLDOPA
  5. SPEDRA [Suspect]
     Active Substance: AVANAFIL
     Indication: PRODUCT USED FOR UNKNOWN INDICATION
     Dosage: 100 MG
     Dates: start: 20150305, end: 20150305
  6. TRITACE [Concomitant]
     Active Substance: RAMIPRIL

REACTIONS (5)
  - Chills [Recovering/Resolving]
  - Malaise [Recovering/Resolving]
  - Insomnia [Unknown]
  - Chest pain [Recovering/Resolving]
  - Feeling cold [Recovering/Resolving]

NARRATIVE: CASE EVENT DATE: 20150305
